FAERS Safety Report 21524036 (Version 4)
Quarter: 2022Q4

REPORT INFORMATION
  Report Type: Spontaneous
  Country: US (occurrence: US)
  Receive Date: 20221029
  Receipt Date: 20221116
  Transmission Date: 20230112
  Serious: Yes (Other)
  Sender: FDA-Public Use
  Company Number: US-SANOFI-01333584

PATIENT
  Age: 40 Year
  Sex: Female

DRUGS (1)
  1. NEXVIAZYME [Suspect]
     Active Substance: AVALGLUCOSIDASE ALFA-NGPT
     Dosage: UNK
     Route: 041
     Dates: start: 202203

REACTIONS (9)
  - Anaphylactic reaction [Recovered/Resolved]
  - Tongue disorder [Recovered/Resolved]
  - Dyspnoea [Recovered/Resolved]
  - Dysphagia [Recovered/Resolved]
  - Pharyngeal swelling [Unknown]
  - Swollen tongue [Unknown]
  - Heart rate increased [Unknown]
  - Oxygen saturation decreased [Unknown]
  - Somnolence [Unknown]

NARRATIVE: CASE EVENT DATE: 20220101
